FAERS Safety Report 6090251-5 (Version None)
Quarter: 2009Q1

REPORT INFORMATION
  Report Type: 
  Country: None (occurrence: None)
  Receive Date: 20090220
  Receipt Date: 20090217
  Transmission Date: 20090719
  Serious: Yes (Death, Life-Threatening, Hospitalization, Other)
  Sender: FDA-Public Use
  Company Number: 2009SP000037

PATIENT
  Age: 50 Year
  Sex: Male
  Weight: 83 kg

DRUGS (3)
  1. PEGETRON (PEGINTERFERON ALFA-2B W/RIBAVIRIN) (PEGYLATED INTERFERON ALF [Suspect]
     Indication: HEPATITIS C
     Dosage: 120,SC; 1000 MG;QD;PO
     Route: 058
     Dates: start: 20081211, end: 20090112
  2. PEGETRON (PEGINTERFERON ALFA-2B W/RIBAVIRIN) (PEGYLATED INTERFERON ALF [Suspect]
     Indication: HEPATITIS C
     Dosage: 120,SC; 1000 MG;QD;PO
     Route: 058
     Dates: start: 20081211, end: 20090112
  3. TYLENOL W/ CODEINE [Concomitant]

REACTIONS (14)
  - ABASIA [None]
  - ABDOMINAL PAIN [None]
  - GENERAL PHYSICAL HEALTH DETERIORATION [None]
  - HYPOPHAGIA [None]
  - LETHARGY [None]
  - MOVEMENT DISORDER [None]
  - NAUSEA [None]
  - NEOPLASM SKIN [None]
  - ORCHITIS [None]
  - PAIN IN EXTREMITY [None]
  - SEPSIS [None]
  - TESTICULAR SWELLING [None]
  - THROMBOSIS [None]
  - VOMITING [None]
